FAERS Safety Report 14112696 (Version 2)
Quarter: 2018Q2

REPORT INFORMATION
  Report Type: Report from Study
  Country: US (occurrence: US)
  Receive Date: 20171021
  Receipt Date: 20180526
  Transmission Date: 20180711
  Serious: Yes (Other)
  Sender: FDA-Public Use
  Company Number: PHEH2017US033557

PATIENT
  Age: 66 Year
  Sex: Female

DRUGS (2)
  1. COSENTYX [Suspect]
     Active Substance: SECUKINUMAB
     Indication: PSORIATIC ARTHROPATHY
  2. COSENTYX [Suspect]
     Active Substance: SECUKINUMAB
     Indication: PSORIASIS
     Dosage: 300 MG, QMO
     Route: 058
     Dates: start: 2015

REACTIONS (7)
  - Nerve compression [Unknown]
  - Pain [Unknown]
  - Drug ineffective [Unknown]
  - Rib fracture [Unknown]
  - Skin disorder [Unknown]
  - Road traffic accident [Unknown]
  - Cervical vertebral fracture [Unknown]

NARRATIVE: CASE EVENT DATE: 20161201
